FAERS Safety Report 6738716-4 (Version None)
Quarter: 2010Q2

REPORT INFORMATION
  Report Type: 
  Country: None (occurrence: None)
  Receive Date: 20100524
  Receipt Date: 20100412
  Transmission Date: 20101027
  Serious: Yes (Death, Other)
  Sender: FDA-Public Use
  Company Number: US-BAXTER-2010BH001833

PATIENT
  Age: 44 Year
  Sex: Male

DRUGS (19)
  1. HEPARIN SODIUM INJECTION [Suspect]
     Indication: CHONDROSARCOMA METASTATIC
     Route: 065
     Dates: start: 20071231, end: 20080104
  2. MS CONTIN [Concomitant]
     Route: 065
  3. ROXANOL [Concomitant]
     Route: 065
  4. PREVACID [Concomitant]
     Route: 065
  5. XANAX [Concomitant]
     Route: 065
  6. METHADONE [Concomitant]
     Route: 065
  7. DEXAMETHASONE [Concomitant]
     Route: 065
  8. ALPRAZOLAM [Concomitant]
     Route: 065
  9. OLANZAPINE [Concomitant]
     Route: 065
  10. DOCUSATE [Concomitant]
     Route: 065
  11. SENNA [Concomitant]
     Route: 065
  12. PANTOPRAZOLE [Concomitant]
     Route: 065
  13. CITALOPRAM [Concomitant]
     Route: 065
  14. LIDOCAINE [Concomitant]
     Route: 065
  15. HYDROMORPHONE HCL [Concomitant]
     Route: 065
  16. PREGABALIN [Concomitant]
     Route: 065
  17. PERIFOSINE [Concomitant]
     Route: 065
  18. SUNITINIB MALATE [Concomitant]
     Route: 065
  19. SIROLIMUS [Concomitant]
     Route: 065

REACTIONS (4)
  - ASTHENIA [None]
  - CHONDROSARCOMA [None]
  - DYSPNOEA [None]
  - RESPIRATORY FAILURE [None]
